FAERS Safety Report 7875391-X (Version None)
Quarter: 2011Q4

REPORT INFORMATION
  Report Type: 
  Country: None (occurrence: None)
  Receive Date: 20111031
  Receipt Date: 20111019
  Transmission Date: 20120403
  Serious: Yes (Death)
  Sender: FDA-Public Use
  Company Number: CH-GLAXOSMITHKLINE-B0758597A

PATIENT
  Age: 61 Year
  Sex: Female

DRUGS (6)
  1. FLURAZEPAM [Suspect]
     Indication: SLEEP DISORDER
     Dosage: 15MG PER DAY
     Route: 048
     Dates: start: 20100412, end: 20100424
  2. REMERON [Suspect]
     Indication: DEPRESSION
     Route: 048
     Dates: start: 20100413, end: 20100424
  3. LAMICTAL [Suspect]
     Indication: BIPOLAR II DISORDER
     Dosage: 25MG PER DAY
     Route: 048
     Dates: start: 20100413, end: 20100424
  4. ZOLPIDEM [Concomitant]
     Indication: PRODUCT USED FOR UNKNOWN INDICATION
     Route: 065
  5. TRIAZOLAM [Concomitant]
     Indication: PRODUCT USED FOR UNKNOWN INDICATION
     Route: 065
  6. LITHIUM CARBONATE [Concomitant]
     Indication: PRODUCT USED FOR UNKNOWN INDICATION
     Route: 065

REACTIONS (1)
  - COMPLETED SUICIDE [None]
